FAERS Safety Report 7384961-7 (Version None)
Quarter: 2011Q1

REPORT INFORMATION
  Report Type: 
  Country: None (occurrence: None)
  Receive Date: 20110330
  Receipt Date: 20110321
  Transmission Date: 20110831
  Serious: Yes (Hospitalization)
  Sender: FDA-Public Use
  Company Number: FR-ASTRAZENECA-2011SE16385

PATIENT
  Age: 21668 Day
  Sex: Male

DRUGS (5)
  1. XATRAL [Suspect]
     Route: 048
     Dates: start: 20110122, end: 20110210
  2. METHYLPREDNISOLONE MYLAN [Suspect]
     Route: 048
     Dates: start: 20110120
  3. NEXIUM [Suspect]
     Route: 048
     Dates: start: 20110122, end: 20110212
  4. LAROXYL ROCHE [Suspect]
     Route: 048
     Dates: start: 20110122
  5. CLASTOBAN [Suspect]
     Route: 048
     Dates: start: 20110122, end: 20110210

REACTIONS (1)
  - HEPATITIS CHOLESTATIC [None]
